FAERS Safety Report 9513585 (Version 3)
Quarter: 2014Q2

REPORT INFORMATION
  Report Type: Spontaneous
  Country: CH (occurrence: CH)
  Receive Date: 20130910
  Receipt Date: 20140619
  Transmission Date: 20141212
  Serious: Yes (Other)
  Sender: FDA-Public Use
  Company Number: CH-TEVA-430505ISR

PATIENT
  Age: 70 Year
  Sex: Male

DRUGS (5)
  1. AMIODARONE [Suspect]
     Indication: PRODUCT USED FOR UNKNOWN INDICATION
     Dosage: 100 MILLIGRAM DAILY; PATIENT HAD BEEN TAKING AMIODARONE AT 100 MG PER DAY FOR
     Route: 048
     Dates: end: 2013
  2. AMIODARONE [Interacting]
     Dosage: 200 MILLIGRAM DAILY; INCREASED FROM 100MG DAILY TO 200MG DAILY
     Route: 048
     Dates: start: 20130305
  3. XARELTO [Interacting]
     Indication: ATRIAL FIBRILLATION
     Dosage: 20 MILLIGRAM DAILY;
     Route: 048
     Dates: start: 20130305, end: 20130905
  4. RASILAMLO HCT [Concomitant]
     Indication: PRODUCT USED FOR UNKNOWN INDICATION
     Route: 048
     Dates: start: 201202, end: 20130905
  5. SIMCORA [Concomitant]
     Indication: PRODUCT USED FOR UNKNOWN INDICATION
     Dosage: 10 MILLIGRAM DAILY;
     Route: 048

REACTIONS (2)
  - Renal failure chronic [Not Recovered/Not Resolved]
  - Drug interaction [Recovered/Resolved]
